FAERS Safety Report 6092656-5 (Version None)
Quarter: 2009Q1

REPORT INFORMATION
  Report Type: 
  Country: None (occurrence: None)
  Receive Date: 20090225
  Receipt Date: 20090210
  Transmission Date: 20090719
  Serious: Yes (Hospitalization)
  Sender: FDA-Public Use
  Company Number: PHHY2009ES04680

PATIENT

DRUGS (3)
  1. CHLORTHALIDONE [Interacting]
     Indication: HYPERTENSION
     Dosage: 25 MG, QD
     Route: 048
     Dates: start: 20070101
  2. DIOVAN HCT [Suspect]
     Indication: HYPERTENSION
     Dosage: 80/12.5 MG
     Dates: start: 20070101, end: 20081121
  3. ATENOLOL [Concomitant]

REACTIONS (8)
  - ABDOMINAL PAIN UPPER [None]
  - CAROTID ARTERY STENOSIS [None]
  - DIZZINESS [None]
  - DRUG INTERACTION [None]
  - HAEMODYNAMIC INSTABILITY [None]
  - HYPERHIDROSIS [None]
  - LOSS OF CONSCIOUSNESS [None]
  - SYNCOPE [None]
